FAERS Safety Report 9371908 (Version 1)
Quarter: 2013Q2

REPORT INFORMATION
  Report Type: Report from Study
  Country: US (occurrence: US)
  Receive Date: 20130627
  Receipt Date: 20130627
  Transmission Date: 20140414
  Serious: Yes (Death)
  Sender: FDA-Public Use
  Company Number: US-MYLANLABS-2012S1009950

PATIENT
  Age: 62 Year
  Sex: Female
  Weight: 58.97 kg

DRUGS (16)
  1. CLOZAPINE TABLETS [Suspect]
     Indication: SCHIZOPHRENIA
     Route: 048
     Dates: end: 20120418
  2. CLOZAPINE TABLETS [Suspect]
     Indication: SCHIZOPHRENIA
     Dosage: 100MG IN AM AND 400MG AT HS
     Route: 048
     Dates: end: 20120418
  3. DOCUSATE SODIUM [Concomitant]
  4. OMEPRAZOLE [Concomitant]
  5. SERTRALINE [Concomitant]
  6. FERROUS SULFATE [Concomitant]
  7. SENNA-GEN [Concomitant]
  8. ANASTROZOLE [Concomitant]
  9. CALCIUM PLUS VITAMIN D [Concomitant]
  10. ALBUTEROL [Concomitant]
  11. DULCOLAX (BISACODYL) [Concomitant]
  12. ENSURE PLUS [Concomitant]
  13. MUPIROCIN [Concomitant]
     Route: 061
  14. NYSTATIN [Concomitant]
     Route: 061
  15. TRIPLE ANTIBIOTIC /00038301/ [Concomitant]
     Route: 061
  16. TYLENOL [Concomitant]

REACTIONS (1)
  - Death [Fatal]
